FAERS Safety Report 7873517-5 (Version None)
Quarter: 2011Q4

REPORT INFORMATION
  Report Type: 
  Country: None (occurrence: None)
  Receive Date: 20111030
  Receipt Date: 20110505
  Transmission Date: 20120403
  Serious: No
  Sender: FDA-Public Use
  Company Number: US-AMGEN-USASP2011023443

PATIENT
  Sex: Male

DRUGS (1)
  1. ENBREL [Suspect]
     Indication: PSORIATIC ARTHROPATHY
     Dosage: 50 MG, 2 TIMES/WK
     Dates: start: 20101101, end: 20110401

REACTIONS (5)
  - CONTUSION [None]
  - MUSCLE TWITCHING [None]
  - FURUNCLE [None]
  - DRUG INEFFECTIVE [None]
  - PAIN IN EXTREMITY [None]
